FAERS Safety Report 20232486 (Version 1)
Quarter: 2021Q4

REPORT INFORMATION
  Report Type: Spontaneous
  Country: DE (occurrence: DE)
  Receive Date: 20211227
  Receipt Date: 20211227
  Transmission Date: 20220303
  Serious: Yes (Other)
  Sender: FDA-Public Use
  Company Number: DE-009507513-2112DEU007853

PATIENT
  Age: 53 Year
  Sex: Female

DRUGS (3)
  1. TEMOZOLOMIDE [Suspect]
     Active Substance: TEMOZOLOMIDE
     Indication: Anaplastic oligodendroglioma
     Route: 048
  2. PROCARBAZINE [Suspect]
     Active Substance: PROCARBAZINE
     Indication: Anaplastic oligodendroglioma
  3. LOMUSTINE [Suspect]
     Active Substance: LOMUSTINE
     Indication: Anaplastic oligodendroglioma

REACTIONS (1)
  - Tumour pseudoprogression [Unknown]
